FAERS Safety Report 6307043-1 (Version None)
Quarter: 2009Q3

REPORT INFORMATION
  Report Type: 
  Country: None (occurrence: None)
  Receive Date: 20090812
  Receipt Date: 20090803
  Transmission Date: 20100115
  Serious: No
  Sender: FDA-Public Use
  Company Number: PHEH2009US08666

PATIENT
  Sex: Male

DRUGS (2)
  1. TASIGNA [Suspect]
  2. CLONAZEPAM [Interacting]
     Indication: ANXIETY
     Dosage: 0.05 MG, UNK

REACTIONS (1)
  - POTENTIATING DRUG INTERACTION [None]
